FAERS Safety Report 5974122-8 (Version None)
Quarter: 2008Q4

REPORT INFORMATION
  Report Type: 
  Country: None (occurrence: None)
  Receive Date: 20081201
  Receipt Date: 20081126
  Transmission Date: 20090506
  Serious: Yes (Hospitalization, Other)
  Sender: FDA-Public Use
  Company Number: JP-PFIZER INC-2008096224

PATIENT
  Sex: Female
  Weight: 49 kg

DRUGS (4)
  1. GABAPEN [Suspect]
     Indication: CONVULSION
     Dosage: DAILY DOSE:600MG
     Route: 048
     Dates: start: 20080821, end: 20080909
  2. PAXIL [Suspect]
     Indication: DEPRESSION
     Dosage: DAILY DOSE:40MG
     Route: 048
  3. DEPAKENE [Suspect]
     Indication: CONVULSION
     Dosage: DAILY DOSE:600MG
     Route: 048
  4. LANDSEN [Concomitant]
     Route: 048
     Dates: start: 20080729

REACTIONS (2)
  - ABULIA [None]
  - DEPRESSION [None]
